FAERS Safety Report 18502600 (Version 1)
Quarter: 2020Q4

REPORT INFORMATION
  Report Type: Spontaneous
  Country: CH (occurrence: CH)
  Receive Date: 20201113
  Receipt Date: 20201113
  Transmission Date: 20210114
  Serious: Yes (Other)
  Sender: FDA-Public Use
  Company Number: NVSC2020CH293528

PATIENT
  Sex: Female

DRUGS (4)
  1. BEOVU [Suspect]
     Active Substance: BROLUCIZUMAB-DBLL
     Dosage: IN LEFT EYE
     Route: 031
     Dates: start: 20200812
  2. EYLEA [Suspect]
     Active Substance: AFLIBERCEPT
     Indication: PRODUCT USED FOR UNKNOWN INDICATION
     Dosage: UNK (10X)
     Route: 065
  3. BEOVU [Suspect]
     Active Substance: BROLUCIZUMAB-DBLL
     Dosage: IN RIGHT EYE
     Route: 031
     Dates: start: 20200909
  4. BEOVU [Suspect]
     Active Substance: BROLUCIZUMAB-DBLL
     Dosage: UNK IN RIGHT EYE
     Route: 031
     Dates: start: 20200805

REACTIONS (3)
  - Toxic anterior segment syndrome [Unknown]
  - Eye irritation [Unknown]
  - Uveitis [Unknown]

NARRATIVE: CASE EVENT DATE: 20200912
